FAERS Safety Report 6702944-4 (Version None)
Quarter: 2010Q2

REPORT INFORMATION
  Report Type: 
  Country: None (occurrence: None)
  Receive Date: 20100429
  Receipt Date: 20100427
  Transmission Date: 20101027
  Serious: Yes (Hospitalization)
  Sender: FDA-Public Use
  Company Number: ES-MERCK-1004ESP00037

PATIENT
  Age: 20 Year
  Sex: Male

DRUGS (2)
  1. SINGULAIR [Suspect]
     Indication: ASTHMA
     Route: 048
     Dates: start: 20100203, end: 20100328
  2. FOSTER [Suspect]
     Indication: ASTHMA
     Route: 055
     Dates: start: 20100203, end: 20100328

REACTIONS (1)
  - ACUTE PSYCHOSIS [None]
